FAERS Safety Report 4605940-6 (Version None)
Quarter: 2005Q1

REPORT INFORMATION
  Report Type: 
  Country: None (occurrence: None)
  Receive Date: 20050116
  Receipt Date: 20041222
  Transmission Date: 20050727
  Serious: Yes (Other)
  Sender: FDA-Public Use
  Company Number: PHEH2004US13609

PATIENT
  Age: 60 Year
  Sex: Male

DRUGS (1)
  1. GLEEVEC [Suspect]
     Indication: CHRONIC MYELOID LEUKAEMIA
     Dosage: 499-600 MG/DAY; ORAL
     Route: 048
     Dates: start: 20020101

REACTIONS (4)
  - EYE IRRITATION [None]
  - EYE PRURITUS [None]
  - GLAUCOMA [None]
  - LACRIMATION INCREASED [None]
